FAERS Safety Report 20341326 (Version 1)
Quarter: 2022Q1

REPORT INFORMATION
  Report Type: Spontaneous
  Country: CA (occurrence: CA)
  Receive Date: 20220117
  Receipt Date: 20220117
  Transmission Date: 20220423
  Serious: Yes (Other)
  Sender: FDA-Public Use
  Company Number: CA-VIIV HEALTHCARE LIMITED-CA2022AMR004041

PATIENT
  Age: 56 Year
  Sex: Female
  Weight: 58 kg

DRUGS (112)
  1. ABACAVIR [Interacting]
     Active Substance: ABACAVIR
     Indication: HIV infection
     Dosage: UNK
     Route: 065
  2. ABACAVIR [Interacting]
     Active Substance: ABACAVIR
     Dosage: UNK
     Route: 065
  3. ABACAVIR [Interacting]
     Active Substance: ABACAVIR
     Dosage: UNK
     Route: 065
  4. ABACAVIR [Interacting]
     Active Substance: ABACAVIR
     Dosage: UNK
     Route: 065
  5. ABACAVIR [Interacting]
     Active Substance: ABACAVIR
     Dosage: UNK
     Route: 065
  6. ABACAVIR [Interacting]
     Active Substance: ABACAVIR
     Dosage: UNK
     Route: 065
  7. ABACAVIR [Interacting]
     Active Substance: ABACAVIR
     Dosage: UNK
     Route: 065
  8. ABACAVIR [Interacting]
     Active Substance: ABACAVIR
     Dosage: UNK
     Route: 065
  9. ABACAVIR [Interacting]
     Active Substance: ABACAVIR
     Dosage: UNK
     Route: 065
  10. ABACAVIR [Interacting]
     Active Substance: ABACAVIR
     Dosage: UNK
     Route: 065
  11. ABACAVIR [Interacting]
     Active Substance: ABACAVIR
     Dosage: UNK
     Route: 065
  12. ABACAVIR [Interacting]
     Active Substance: ABACAVIR
     Dosage: UNK
     Route: 065
  13. ABACAVIR [Interacting]
     Active Substance: ABACAVIR
     Dosage: UNK
     Route: 065
  14. ABACAVIR [Interacting]
     Active Substance: ABACAVIR
     Dosage: UNK
     Route: 065
  15. ABACAVIR [Interacting]
     Active Substance: ABACAVIR
     Dosage: UNK
     Route: 065
  16. ABACAVIR [Interacting]
     Active Substance: ABACAVIR
     Dosage: UNK
     Route: 065
  17. ABACAVIR [Interacting]
     Active Substance: ABACAVIR
     Dosage: UNK
     Route: 065
  18. ABACAVIR [Interacting]
     Active Substance: ABACAVIR
     Dosage: UNK
     Route: 065
  19. ABACAVIR [Interacting]
     Active Substance: ABACAVIR
     Dosage: UNK
     Route: 065
  20. ABACAVIR [Interacting]
     Active Substance: ABACAVIR
     Dosage: UNK
     Route: 065
  21. ABACAVIR [Interacting]
     Active Substance: ABACAVIR
     Dosage: UNK
     Route: 065
  22. DOLUTEGRAVIR [Interacting]
     Active Substance: DOLUTEGRAVIR
     Indication: HIV infection
     Dosage: UNK
     Route: 065
  23. DOLUTEGRAVIR [Interacting]
     Active Substance: DOLUTEGRAVIR
     Dosage: UNK
     Route: 065
  24. DOLUTEGRAVIR [Interacting]
     Active Substance: DOLUTEGRAVIR
     Dosage: UNK
     Route: 065
  25. DOLUTEGRAVIR [Interacting]
     Active Substance: DOLUTEGRAVIR
     Dosage: UNK
     Route: 065
  26. DOLUTEGRAVIR [Interacting]
     Active Substance: DOLUTEGRAVIR
     Dosage: UNK
     Route: 065
  27. DOLUTEGRAVIR [Interacting]
     Active Substance: DOLUTEGRAVIR
     Dosage: 50 MG, 1 EVERY 5 DAYS
     Route: 065
  28. DOLUTEGRAVIR [Interacting]
     Active Substance: DOLUTEGRAVIR
     Dosage: UNK
     Route: 065
  29. DOLUTEGRAVIR [Interacting]
     Active Substance: DOLUTEGRAVIR
     Dosage: UNK
     Route: 065
  30. DOLUTEGRAVIR [Interacting]
     Active Substance: DOLUTEGRAVIR
     Dosage: UNK
     Route: 065
  31. DOLUTEGRAVIR [Interacting]
     Active Substance: DOLUTEGRAVIR
     Dosage: UNK
     Route: 065
  32. DOLUTEGRAVIR [Interacting]
     Active Substance: DOLUTEGRAVIR
     Dosage: UNK
     Route: 065
  33. DOLUTEGRAVIR [Interacting]
     Active Substance: DOLUTEGRAVIR
     Dosage: UNK
     Route: 065
  34. DOLUTEGRAVIR [Interacting]
     Active Substance: DOLUTEGRAVIR
     Dosage: UNK
     Route: 065
  35. DOLUTEGRAVIR [Interacting]
     Active Substance: DOLUTEGRAVIR
     Dosage: UNK
     Route: 065
  36. DOLUTEGRAVIR [Interacting]
     Active Substance: DOLUTEGRAVIR
     Dosage: UNK
     Route: 065
  37. DOLUTEGRAVIR [Interacting]
     Active Substance: DOLUTEGRAVIR
     Dosage: UNK
     Route: 065
  38. DOLUTEGRAVIR [Interacting]
     Active Substance: DOLUTEGRAVIR
     Dosage: UNK
     Route: 065
  39. DOLUTEGRAVIR [Interacting]
     Active Substance: DOLUTEGRAVIR
     Dosage: UNK
     Route: 065
  40. DOLUTEGRAVIR [Interacting]
     Active Substance: DOLUTEGRAVIR
     Dosage: UNK
     Route: 065
  41. DOLUTEGRAVIR [Interacting]
     Active Substance: DOLUTEGRAVIR
     Dosage: UNK
     Route: 065
  42. DOLUTEGRAVIR [Interacting]
     Active Substance: DOLUTEGRAVIR
     Dosage: UNK
     Route: 065
  43. DOLUTEGRAVIR [Interacting]
     Active Substance: DOLUTEGRAVIR
     Dosage: UNK
     Route: 065
  44. TACROLIMUS [Interacting]
     Active Substance: TACROLIMUS
     Indication: Renal transplant
     Dosage: 9 MG
     Route: 065
  45. TACROLIMUS [Interacting]
     Active Substance: TACROLIMUS
     Dosage: 1 MG
     Route: 065
  46. TACROLIMUS [Interacting]
     Active Substance: TACROLIMUS
     Dosage: UNK
     Route: 065
  47. TACROLIMUS [Interacting]
     Active Substance: TACROLIMUS
     Dosage: 0.5 MG
     Route: 065
  48. TACROLIMUS [Interacting]
     Active Substance: TACROLIMUS
     Dosage: 0.5 MG
     Route: 065
  49. TACROLIMUS [Interacting]
     Active Substance: TACROLIMUS
     Dosage: 0.5 MG
     Route: 065
  50. TACROLIMUS [Interacting]
     Active Substance: TACROLIMUS
     Dosage: 0.5 MG
     Route: 065
  51. TACROLIMUS [Interacting]
     Active Substance: TACROLIMUS
     Dosage: 0.5 MG
     Route: 065
  52. TACROLIMUS [Interacting]
     Active Substance: TACROLIMUS
     Dosage: 0.5 MG
     Route: 065
  53. TACROLIMUS [Interacting]
     Active Substance: TACROLIMUS
     Dosage: UNK
     Route: 065
  54. TACROLIMUS [Interacting]
     Active Substance: TACROLIMUS
     Dosage: 9 MG
     Route: 065
  55. TACROLIMUS [Interacting]
     Active Substance: TACROLIMUS
     Dosage: 0.5 MG
     Route: 065
  56. TACROLIMUS [Interacting]
     Active Substance: TACROLIMUS
     Dosage: 0.5 MG
     Route: 065
  57. TACROLIMUS [Interacting]
     Active Substance: TACROLIMUS
     Dosage: 0.5 MG
     Route: 065
  58. TACROLIMUS [Interacting]
     Active Substance: TACROLIMUS
     Dosage: 1 MG
     Route: 065
  59. TACROLIMUS [Interacting]
     Active Substance: TACROLIMUS
     Dosage: 0.5 MG
     Route: 065
  60. TACROLIMUS [Interacting]
     Active Substance: TACROLIMUS
     Dosage: 0.5 MG
     Route: 065
  61. TACROLIMUS [Interacting]
     Active Substance: TACROLIMUS
     Dosage: 9 MG
     Route: 065
  62. TACROLIMUS [Interacting]
     Active Substance: TACROLIMUS
     Dosage: UNK
     Route: 065
  63. DARUNAVIR [Interacting]
     Active Substance: DARUNAVIR
     Indication: HIV infection
     Dosage: UNK
     Route: 065
  64. DARUNAVIR [Interacting]
     Active Substance: DARUNAVIR
     Dosage: UNK
     Route: 065
  65. DARUNAVIR [Interacting]
     Active Substance: DARUNAVIR
     Dosage: UNK
     Route: 065
  66. DARUNAVIR [Interacting]
     Active Substance: DARUNAVIR
     Dosage: UNK
     Route: 065
  67. DARUNAVIR [Interacting]
     Active Substance: DARUNAVIR
     Dosage: UNK
     Route: 065
  68. DARUNAVIR [Interacting]
     Active Substance: DARUNAVIR
     Dosage: 600 MG, 1 EVERY 5 DAYS
     Route: 065
  69. DARUNAVIR [Interacting]
     Active Substance: DARUNAVIR
     Dosage: UNK
     Route: 065
  70. DARUNAVIR [Interacting]
     Active Substance: DARUNAVIR
     Dosage: UNK
     Route: 065
  71. DARUNAVIR [Interacting]
     Active Substance: DARUNAVIR
     Dosage: UNK
     Route: 065
  72. DARUNAVIR [Interacting]
     Active Substance: DARUNAVIR
     Dosage: UNK
     Route: 065
  73. DARUNAVIR [Interacting]
     Active Substance: DARUNAVIR
     Dosage: UNK
     Route: 065
  74. DARUNAVIR [Interacting]
     Active Substance: DARUNAVIR
     Dosage: UNK
     Route: 065
  75. DARUNAVIR [Interacting]
     Active Substance: DARUNAVIR
     Dosage: UNK
     Route: 065
  76. DARUNAVIR [Interacting]
     Active Substance: DARUNAVIR
     Dosage: UNK
     Route: 065
  77. DARUNAVIR [Interacting]
     Active Substance: DARUNAVIR
     Dosage: UNK
     Route: 065
  78. DARUNAVIR [Interacting]
     Active Substance: DARUNAVIR
     Dosage: UNK
     Route: 065
  79. DARUNAVIR [Interacting]
     Active Substance: DARUNAVIR
     Dosage: UNK
     Route: 065
  80. DARUNAVIR [Interacting]
     Active Substance: DARUNAVIR
     Dosage: UNK
     Route: 065
  81. DARUNAVIR [Interacting]
     Active Substance: DARUNAVIR
     Dosage: UNK
     Route: 065
  82. DARUNAVIR [Interacting]
     Active Substance: DARUNAVIR
     Dosage: UNK
     Route: 065
  83. DARUNAVIR [Interacting]
     Active Substance: DARUNAVIR
     Dosage: UNK
     Route: 065
  84. RITONAVIR [Interacting]
     Active Substance: RITONAVIR
     Indication: HIV infection
     Dosage: UNK
     Route: 065
  85. RITONAVIR [Interacting]
     Active Substance: RITONAVIR
     Dosage: UNK
     Route: 065
  86. RITONAVIR [Interacting]
     Active Substance: RITONAVIR
     Dosage: UNK
     Route: 065
  87. RITONAVIR [Interacting]
     Active Substance: RITONAVIR
     Dosage: UNK
     Route: 065
  88. RITONAVIR [Interacting]
     Active Substance: RITONAVIR
     Dosage: UNK
     Route: 065
  89. RITONAVIR [Interacting]
     Active Substance: RITONAVIR
     Dosage: UNK
     Route: 065
  90. RITONAVIR [Interacting]
     Active Substance: RITONAVIR
     Dosage: UNK
     Route: 065
  91. RITONAVIR [Interacting]
     Active Substance: RITONAVIR
     Dosage: UNK
     Route: 065
  92. RITONAVIR [Interacting]
     Active Substance: RITONAVIR
     Dosage: UNK
     Route: 065
  93. RITONAVIR [Interacting]
     Active Substance: RITONAVIR
     Dosage: UNK
     Route: 065
  94. RITONAVIR [Interacting]
     Active Substance: RITONAVIR
     Dosage: UNK
     Route: 065
  95. RITONAVIR [Interacting]
     Active Substance: RITONAVIR
     Dosage: UNK
     Route: 065
  96. RITONAVIR [Interacting]
     Active Substance: RITONAVIR
     Dosage: UNK
     Route: 065
  97. RITONAVIR [Interacting]
     Active Substance: RITONAVIR
     Dosage: UNK
     Route: 065
  98. RITONAVIR [Interacting]
     Active Substance: RITONAVIR
     Dosage: 100 MG, 1 EVERY 5 DAYS
     Route: 065
  99. RITONAVIR [Interacting]
     Active Substance: RITONAVIR
     Dosage: UNK
     Route: 065
  100. RITONAVIR [Interacting]
     Active Substance: RITONAVIR
     Dosage: UNK
     Route: 065
  101. RITONAVIR [Interacting]
     Active Substance: RITONAVIR
     Dosage: UNK
     Route: 065
  102. RITONAVIR [Interacting]
     Active Substance: RITONAVIR
     Dosage: UNK
     Route: 065
  103. RITONAVIR [Interacting]
     Active Substance: RITONAVIR
     Dosage: UNK
     Route: 065
  104. RITONAVIR [Interacting]
     Active Substance: RITONAVIR
     Dosage: UNK
     Route: 065
  105. ABACAVIR [Interacting]
     Active Substance: ABACAVIR
     Indication: HIV infection
     Dosage: 600 MG, QD
     Route: 065
  106. TACROLIMUS [Interacting]
     Active Substance: TACROLIMUS
     Indication: Renal transplant
     Dosage: 9 MG
     Route: 065
  107. AMLODIPINE [Concomitant]
     Active Substance: AMLODIPINE BESYLATE
     Indication: Product used for unknown indication
     Dosage: UNK
     Route: 065
  108. FERROUS FUMARATE [Concomitant]
     Active Substance: FERROUS FUMARATE
     Indication: Product used for unknown indication
     Dosage: UNK
     Route: 065
  109. MYCOPHENOLATE MOFETIL [Concomitant]
     Active Substance: MYCOPHENOLATE MOFETIL
     Indication: Product used for unknown indication
     Dosage: UNK
     Route: 065
  110. PANTOPRAZOLE [Concomitant]
     Active Substance: PANTOPRAZOLE
     Indication: Product used for unknown indication
     Dosage: UNK
     Route: 065
  111. PREDNISONE [Concomitant]
     Active Substance: PREDNISONE
     Indication: Product used for unknown indication
     Dosage: UNK
     Route: 065
  112. SULFAMETHOXAZOLE\TRIMETHOPRIM [Concomitant]
     Active Substance: SULFAMETHOXAZOLE\TRIMETHOPRIM
     Indication: Product used for unknown indication
     Dosage: UNK
     Route: 065

REACTIONS (5)
  - Diabetes mellitus [Recovered/Resolved]
  - Drug interaction [Recovered/Resolved]
  - Immunosuppressant drug level increased [Recovered/Resolved]
  - Nephropathy toxic [Recovered/Resolved]
  - Toxicity to various agents [Recovered/Resolved]
